FAERS Safety Report 9853627 (Version 2)
Quarter: 2014Q1

REPORT INFORMATION
  Report Type: Spontaneous
  Country: US (occurrence: US)
  Receive Date: 20140129
  Receipt Date: 20140218
  Transmission Date: 20141002
  Serious: Yes (Hospitalization, Other)
  Sender: FDA-Public Use
  Company Number: US-TARO-2013P1021041

PATIENT
  Age: 70 Year
  Sex: Male
  Weight: 122.47 kg

DRUGS (23)
  1. WARFARIN SODIUM TABLETS USP 5MG [Suspect]
     Indication: ARRHYTHMIA
     Route: 048
  2. WARFARIN SODIUM TABLETS USP 5MG [Suspect]
     Indication: HEART RATE DECREASED
     Route: 048
  3. WARFARIN SODIUM TABLETS USP 5MG [Suspect]
     Indication: ARRHYTHMIA
     Route: 048
  4. WARFARIN SODIUM TABLETS USP 5MG [Suspect]
     Indication: HEART RATE DECREASED
     Route: 048
  5. ANGIOPRIM [Suspect]
     Dates: start: 201310, end: 201310
  6. METFORMIN [Concomitant]
     Route: 048
  7. SIMVASTATIN [Concomitant]
     Route: 048
  8. FOSINOPRIL [Concomitant]
     Route: 048
  9. LORATADINE [Concomitant]
  10. TERAZOSIN [Concomitant]
     Route: 048
  11. CYCLOBENZAPRINE [Concomitant]
     Route: 048
  12. CAYENNE PEPPER [Concomitant]
  13. CO Q-10 [Concomitant]
  14. LISINOPRIL [Concomitant]
  15. TRAMADOL [Concomitant]
  16. UP TO 20 UNSPECIFIED HERBAL PRODUCTS [Concomitant]
  17. ALBUTEROL [Concomitant]
     Route: 055
  18. OMEPRAZOLE [Concomitant]
  19. TERBINAFINE [Concomitant]
     Route: 048
  20. ALFALFA [Concomitant]
     Route: 048
  21. SAW PALMETTO [Concomitant]
     Route: 048
  22. CLINDAMYCIN [Concomitant]
     Dates: end: 201108
  23. PROCTOFOAM [Concomitant]
     Route: 054

REACTIONS (18)
  - Pulmonary congestion [Not Recovered/Not Resolved]
  - Oropharyngeal pain [Not Recovered/Not Resolved]
  - Dyspnoea [Recovering/Resolving]
  - Arterial occlusive disease [Not Recovered/Not Resolved]
  - Scar [Not Recovered/Not Resolved]
  - Mobility decreased [Recovering/Resolving]
  - Night sweats [Recovering/Resolving]
  - Diarrhoea [Recovered/Resolved]
  - Feeling abnormal [Recovered/Resolved]
  - Cardiovascular disorder [Not Recovered/Not Resolved]
  - Local swelling [Not Recovered/Not Resolved]
  - Pain in extremity [Not Recovered/Not Resolved]
  - Muscle spasms [Not Recovered/Not Resolved]
  - Myocardial infarction [Recovered/Resolved]
  - Hyperhidrosis [Not Recovered/Not Resolved]
  - Syncope [Recovered/Resolved]
  - Fatigue [Unknown]
  - Hypophagia [Unknown]
